FAERS Safety Report 8266038-1 (Version None)
Quarter: 2012Q2

REPORT INFORMATION
  Report Type: 
  Country: None (occurrence: None)
  Receive Date: 20120406
  Receipt Date: 20120326
  Transmission Date: 20120825
  Serious: Yes (Other)
  Sender: FDA-Public Use
  Company Number: IT-BRISTOL-MYERS SQUIBB COMPANY-16506750

PATIENT
  Age: 32 Year
  Sex: Female

DRUGS (8)
  1. VINCRISTINE [Suspect]
     Indication: HODGKIN'S DISEASE
  2. DACARBAZINE [Suspect]
     Indication: HODGKIN'S DISEASE
  3. MECHLORETHAMINE [Suspect]
     Indication: HODGKIN'S DISEASE
  4. BLEOMYCIN SULFATE [Suspect]
     Indication: HODGKIN'S DISEASE
  5. PROCARBAZINE HYDROCHLORIDE [Suspect]
     Indication: HODGKIN'S DISEASE
  6. PREDNISONE TAB [Suspect]
     Indication: HODGKIN'S DISEASE
  7. VINBLASTINE SULFATE [Suspect]
     Indication: HODGKIN'S DISEASE
  8. ADRIAMYCIN PFS [Suspect]
     Indication: HODGKIN'S DISEASE

REACTIONS (1)
  - BARRETT'S OESOPHAGUS [None]
